FAERS Safety Report 6356404-3 (Version None)
Quarter: 2009Q3

REPORT INFORMATION
  Report Type: 
  Country: None (occurrence: None)
  Receive Date: 20090915
  Receipt Date: 20090909
  Transmission Date: 20100115
  Serious: Yes (Other)
  Sender: FDA-Public Use
  Company Number: DE-AVENTIS-200912030DE

PATIENT
  Age: 80 Year
  Sex: Female

DRUGS (1)
  1. CLEXANE [Suspect]
     Route: 058
     Dates: start: 20090101

REACTIONS (1)
  - HYPOTENSION [None]
